FAERS Safety Report 21518963 (Version 1)
Quarter: 2022Q4

REPORT INFORMATION
  Report Type: Spontaneous
  Country: JP (occurrence: JP)
  Receive Date: 20221028
  Receipt Date: 20221028
  Transmission Date: 20230113
  Serious: Yes (Hospitalization)
  Sender: FDA-Public Use
  Company Number: JP-JNJFOC-20221048833

PATIENT
  Sex: Male

DRUGS (10)
  1. PALIPERIDONE PALMITATE [Interacting]
     Active Substance: PALIPERIDONE PALMITATE
     Indication: Schizophrenia
     Route: 030
  2. PALIPERIDONE PALMITATE [Interacting]
     Active Substance: PALIPERIDONE PALMITATE
     Indication: Schizophrenia
     Route: 030
     Dates: start: 20221006
  3. PALIPERIDONE PALMITATE [Interacting]
     Active Substance: PALIPERIDONE PALMITATE
  4. RISPERDAL [Interacting]
     Active Substance: RISPERIDONE
     Indication: Schizophrenia
     Route: 048
  5. RISPERDAL [Interacting]
     Active Substance: RISPERIDONE
     Dosage: IN THE MORNINGIN THE AFTERNOONIN THE EVENING
     Route: 048
  6. RISPERDAL [Interacting]
     Active Substance: RISPERIDONE
     Dosage: DOSE UNKNOWN1TABLET
     Route: 048
  7. RISPERDAL [Interacting]
     Active Substance: RISPERIDONE
     Dosage: IN THE MORNINGIN THE AFTERNOONIN THE EVENING
     Route: 048
     Dates: start: 20221018
  8. ZOTEPINE [Interacting]
     Active Substance: ZOTEPINE
     Indication: Schizophrenia
     Route: 048
  9. FLUNITRAZEPAM [Suspect]
     Active Substance: FLUNITRAZEPAM
     Indication: Product used for unknown indication
     Dosage: DOSE UNKNOWN
     Route: 048
  10. VALPROATE SODIUM [Concomitant]
     Active Substance: VALPROATE SODIUM
     Dosage: DOSE UNKNOWN
     Route: 048

REACTIONS (6)
  - Hospitalisation [Unknown]
  - Chest pain [Unknown]
  - Gait disturbance [Unknown]
  - Dysarthria [Unknown]
  - Dysphemia [Unknown]
  - Drug interaction [Unknown]
